FAERS Safety Report 16282059 (Version 1)
Quarter: 2019Q2

REPORT INFORMATION
  Report Type: Spontaneous
  Country: AU (occurrence: AU)
  Receive Date: 20190507
  Receipt Date: 20190507
  Transmission Date: 20190711
  Serious: Yes (Death, Other)
  Sender: FDA-Public Use
  Company Number: AU-GLAXOSMITHKLINE-AU2019GSK079014

PATIENT
  Age: 57 Year
  Sex: Male

DRUGS (2)
  1. VERAPAMIL TABLETS BP 40MG [Suspect]
     Active Substance: VERAPAMIL HYDROCHLORIDE
     Indication: PRODUCT USED FOR UNKNOWN INDICATION
     Dosage: UNK
  2. NUCALA [Suspect]
     Active Substance: MEPOLIZUMAB
     Indication: ASTHMA
     Dosage: UNK
     Dates: start: 20170509, end: 20190409

REACTIONS (2)
  - Completed suicide [Fatal]
  - Overdose [Fatal]

NARRATIVE: CASE EVENT DATE: 20190502
